FAERS Safety Report 7681242-9 (Version None)
Quarter: 2011Q3

REPORT INFORMATION
  Report Type: 
  Country: None (occurrence: None)
  Receive Date: 20110812
  Receipt Date: 20110802
  Transmission Date: 20111222
  Serious: Yes (Other)
  Sender: FDA-Public Use
  Company Number: GB-ROCHE-789623

PATIENT
  Sex: Male
  Weight: 60.2 kg

DRUGS (4)
  1. PREGABALIN [Concomitant]
     Indication: PAIN
     Route: 048
  2. MORPHINE SULFATE [Concomitant]
     Indication: PAIN
     Route: 048
  3. CAPECITABINE [Concomitant]
     Indication: COLORECTAL CANCER
     Dosage: FOR 14 DAYS
     Route: 048
     Dates: start: 20110706
  4. AVASTIN [Suspect]
     Indication: COLORECTAL CANCER
     Dosage: DOSE REPORTED AS 462.5
     Route: 042
     Dates: start: 20110706

REACTIONS (4)
  - ABDOMINAL PAIN UPPER [None]
  - CONVULSION [None]
  - DECREASED APPETITE [None]
  - POSTICTAL STATE [None]
